FAERS Safety Report 5124060-8 (Version None)
Quarter: 2006Q4

REPORT INFORMATION
  Report Type: 
  Country: None (occurrence: None)
  Receive Date: 20061010
  Receipt Date: 20050927
  Transmission Date: 20070319
  Serious: No
  Sender: FDA-Public Use
  Company Number: US-BRISTOL-MYERS SQUIBB COMPANY-13122817

PATIENT
  Age: 84 Year
  Sex: Female

DRUGS (2)
  1. AVAPRO [Suspect]
  2. NORVASC [Concomitant]

REACTIONS (1)
  - TINNITUS [None]
